FAERS Safety Report 10833184 (Version 1)
Quarter: 2015Q1

REPORT INFORMATION
  Report Type: Spontaneous
  Country: DE (occurrence: DE)
  Receive Date: 20150219
  Receipt Date: 20150219
  Transmission Date: 20150721
  Serious: Yes (Other)
  Sender: FDA-Public Use
  Company Number: DE-INCYTE CORPORATION-2015IN000599

PATIENT
  Sex: Female

DRUGS (3)
  1. CORTISONE [Concomitant]
     Active Substance: CORTISONE\HYDROCORTISONE
     Indication: POLYARTHRITIS
     Dosage: 4 MG, UNK
     Route: 065
  2. VALSACOR [Concomitant]
     Active Substance: VALSARTAN
     Indication: PRODUCT USED FOR UNKNOWN INDICATION
     Route: 065
  3. JAKAFI [Suspect]
     Active Substance: RUXOLITINIB
     Indication: MYELODYSPLASTIC SYNDROME
     Dosage: 5 MG (10 MG PER DAY), BID
     Route: 048
     Dates: start: 20141117

REACTIONS (2)
  - Blood pressure increased [Unknown]
  - Product use issue [Unknown]

NARRATIVE: CASE EVENT DATE: 201412
